FAERS Safety Report 11871920 (Version 1)
Quarter: 2015Q4

REPORT INFORMATION
  Report Type: Spontaneous
  Country: US (occurrence: US)
  Receive Date: 20151228
  Receipt Date: 20151228
  Transmission Date: 20160305
  Serious: Yes (Other)
  Sender: FDA-Public Use
  Company Number: US-BAYER-2015-493229

PATIENT
  Sex: Male

DRUGS (2)
  1. KOGENATE FS [Suspect]
     Active Substance: ANTIHEMOPHILIC FACTOR, HUMAN RECOMBINANT
     Indication: FACTOR VIII DEFICIENCY
     Dosage: 1812 IU (1 VIAL 1091 IU AND 1 VIAL 721 IU) TWICE WEEKLY AND AS NEEDED FOR BLEEDING
  2. KOGENATE FS [Suspect]
     Active Substance: ANTIHEMOPHILIC FACTOR, HUMAN RECOMBINANT
     Indication: FACTOR VIII DEFICIENCY
     Dosage: 1812 IU (1 VIAL 1091 IU AND 1 VIAL 721 IU) TWICE WEEKLY AND AS NEEDED FOR BLEEDING

REACTIONS (1)
  - Haemarthrosis [Recovered/Resolved]
